FAERS Safety Report 19744546 (Version 1)
Quarter: 2021Q3

REPORT INFORMATION
  Report Type: Spontaneous
  Country: US (occurrence: US)
  Receive Date: 20210823
  Receipt Date: 20210823
  Transmission Date: 20211014
  Serious: Yes (Other)
  Sender: FDA-Public Use
  Company Number: None

PATIENT
  Age: 42 Year
  Sex: Female
  Weight: 81 kg

DRUGS (7)
  1. FERRO SEQUEL IRON SUPPLEMENT [Concomitant]
  2. MELATONIN [Concomitant]
     Active Substance: MELATONIN
  3. DYMISTA [Concomitant]
     Active Substance: AZELASTINE HYDROCHLORIDE\FLUTICASONE PROPIONATE
  4. MONTELUKAST SODIUM. [Concomitant]
     Active Substance: MONTELUKAST SODIUM
  5. NATUREMADE MULTI[VITAMIN] FOR HER INCLUDING IRON [Concomitant]
  6. NATUREMADE SUPER B?COMPLEX [Concomitant]
  7. MONTELUKAST [Suspect]
     Active Substance: MONTELUKAST SODIUM
     Indication: SNORING
     Dosage: ?          QUANTITY:1 TABLET(S);?
     Route: 048

REACTIONS (6)
  - Cough [None]
  - Dyspnoea [None]
  - Asthma [None]
  - Snoring [None]
  - Wheezing [None]
  - Product substitution issue [None]

NARRATIVE: CASE EVENT DATE: 20200915
